FAERS Safety Report 6996430-4 (Version None)
Quarter: 2010Q3

REPORT INFORMATION
  Report Type: 
  Country: None (occurrence: None)
  Receive Date: 20100918
  Receipt Date: 20090312
  Transmission Date: 20110219
  Serious: No
  Sender: FDA-Public Use
  Company Number: US-WYE-H08571609

PATIENT
  Sex: Male
  Weight: 94.43 kg

DRUGS (5)
  1. EFFEXOR XR [Suspect]
     Indication: MAJOR DEPRESSION
     Dosage: UNKNOWN
     Route: 048
     Dates: start: 20040421
  2. EFFEXOR XR [Suspect]
     Dosage: ^TITRATED DOWN TO 37.5 GRADUALLY^
     Route: 048
     Dates: end: 20090306
  3. EFFEXOR XR [Suspect]
     Route: 048
     Dates: start: 20090301
  4. ZOCOR [Concomitant]
  5. PRISTIQ [Suspect]
     Indication: MAJOR DEPRESSION
     Route: 048
     Dates: start: 20090306, end: 20090311

REACTIONS (4)
  - DRUG WITHDRAWAL SYNDROME [None]
  - HYPOAESTHESIA ORAL [None]
  - INSOMNIA [None]
  - NASOPHARYNGITIS [None]
